FAERS Safety Report 13140829 (Version 2)
Quarter: 2017Q1

REPORT INFORMATION
  Report Type: Spontaneous
  Country: IT (occurrence: IT)
  Receive Date: 20170123
  Receipt Date: 20170206
  Transmission Date: 20170428
  Serious: Yes (Death, Hospitalization)
  Sender: FDA-Public Use
  Company Number: IT-MYLANLABS-2017M1000824

PATIENT

DRUGS (1)
  1. METFORMIN [Suspect]
     Active Substance: METFORMIN HYDROCHLORIDE
     Indication: DIABETES MELLITUS
     Dosage: UNK

REACTIONS (7)
  - Lactic acidosis [Fatal]
  - Malaise [Fatal]
  - Abdominal pain [Unknown]
  - Cardiac failure [Fatal]
  - Vertigo [Fatal]
  - Vomiting [Fatal]
  - Renal failure [Fatal]
